FAERS Safety Report 19896480 (Version 2)
Quarter: 2021Q4

REPORT INFORMATION
  Report Type: Spontaneous
  Country: SA (occurrence: SA)
  Receive Date: 20210929
  Receipt Date: 20211005
  Transmission Date: 20220303
  Serious: Yes (Hospitalization)
  Sender: FDA-Public Use
  Company Number: 2021A743177

PATIENT
  Age: 17 Year
  Sex: Female
  Weight: 92 kg

DRUGS (3)
  1. DAPAGLIFLOZIN [Suspect]
     Active Substance: DAPAGLIFLOZIN
     Indication: Type 1 diabetes mellitus
     Route: 048
     Dates: start: 20201208, end: 20210915
  2. LANUS [Concomitant]
  3. ACTRAPID [Concomitant]
     Active Substance: INSULIN HUMAN

REACTIONS (2)
  - Diabetic ketoacidosis [Recovering/Resolving]
  - Off label use [Not Recovered/Not Resolved]

NARRATIVE: CASE EVENT DATE: 20210915
